FAERS Safety Report 6151742-1 (Version None)
Quarter: 2009Q2

REPORT INFORMATION
  Report Type: 
  Country: None (occurrence: None)
  Receive Date: 20090410
  Receipt Date: 20090403
  Transmission Date: 20091009
  Serious: Yes (Other)
  Sender: FDA-Public Use
  Company Number: A0777860A

PATIENT
  Sex: Female
  Weight: 109 kg

DRUGS (3)
  1. SERETIDE [Suspect]
     Indication: ASTHMA
     Dates: start: 20060101
  2. AEROLIN [Concomitant]
     Dates: start: 20090224
  3. PREDNISOLONE [Concomitant]
     Dates: start: 20090224

REACTIONS (5)
  - BACK PAIN [None]
  - CHEST PAIN [None]
  - DRUG ADMINISTRATION ERROR [None]
  - DYSPNOEA [None]
  - PNEUMONIA [None]
